FAERS Safety Report 8284360-X (Version None)
Quarter: 2012Q2

REPORT INFORMATION
  Report Type: 
  Country: None (occurrence: None)
  Receive Date: 20120413
  Receipt Date: 20120217
  Transmission Date: 20120825
  Serious: No
  Sender: FDA-Public Use
  Company Number: US-ASTRAZENECA-2012SE11668

PATIENT
  Sex: Male

DRUGS (6)
  1. PREVACID [Concomitant]
  2. NEXIUM [Suspect]
     Route: 048
  3. ZANTAC [Concomitant]
  4. PRILOSEC [Suspect]
     Route: 048
  5. PRILOSEC OTC [Suspect]
     Route: 048
  6. PEPCID [Concomitant]

REACTIONS (4)
  - DRUG INEFFECTIVE [None]
  - DRUG DOSE OMISSION [None]
  - MIDDLE INSOMNIA [None]
  - INSOMNIA [None]
